FAERS Safety Report 4760863-7 (Version None)
Quarter: 2005Q3

REPORT INFORMATION
  Report Type: 
  Country: None (occurrence: None)
  Receive Date: 20050901
  Receipt Date: 20050819
  Transmission Date: 20060218
  Serious: Yes (Other)
  Sender: FDA-Public Use
  Company Number: US-2004-034637

PATIENT
  Age: 55 Year
  Sex: Female
  Weight: 63.5 kg

DRUGS (7)
  1. CLIMARA [Suspect]
     Indication: MENOPAUSAL SYMPTOMS
     Dosage: TRANSDERMAL
     Route: 062
  2. PREMPRO [Suspect]
  3. PROVERA [Suspect]
     Indication: MENOPAUSAL SYMPTOMS
  4. NEXIUM  /USA/ (ESOMEPAZOLE MAGNESIUM) [Concomitant]
  5. ADVAIR (SALMETEROL XINAFOATE, FLUTICASONE PROPIONATE) [Concomitant]
  6. ALLERGA (FEXOFENADINE HDYROCHLORIDE) [Concomitant]
  7. DIET FORMULATIONS FOR TREATMENT OF OBESITY [Concomitant]

REACTIONS (5)
  - BREAST CANCER FEMALE [None]
  - DEPRESSION [None]
  - HOT FLUSH [None]
  - OESTROGEN RECEPTOR ASSAY POSITIVE [None]
  - PROGESTERONE RECEPTOR ASSAY POSITIVE [None]
